FAERS Safety Report 4528166-3 (Version None)
Quarter: 2004Q4

REPORT INFORMATION
  Report Type: 
  Country: None (occurrence: None)
  Receive Date: 20041215
  Receipt Date: 20041208
  Transmission Date: 20050328
  Serious: Yes (Other)
  Sender: FDA-Public Use
  Company Number: DK-MERCK-0412DNK00007

PATIENT
  Age: 75 Year
  Sex: Female
  Weight: 103 kg

DRUGS (4)
  1. VIOXX [Suspect]
     Route: 048
     Dates: start: 20030121, end: 20040901
  2. ASPIRIN [Concomitant]
     Indication: PROPHYLAXIS
     Route: 048
     Dates: start: 20010801
  3. TIOTROPIUM BROMIDE [Concomitant]
     Indication: CHRONIC OBSTRUCTIVE AIRWAYS DISEASE
     Route: 055
     Dates: start: 20010801
  4. OMEPRAZOLE [Concomitant]
     Indication: GASTRITIS
     Route: 048
     Dates: start: 19950101

REACTIONS (1)
  - LACUNAR INFARCTION [None]
